FAERS Safety Report 22812664 (Version 30)
Quarter: 2024Q1

REPORT INFORMATION
  Report Type: Report from Study
  Country: AT (occurrence: AT)
  Receive Date: 20230811
  Receipt Date: 20240326
  Transmission Date: 20240410
  Serious: Yes (Hospitalization, Other)
  Sender: FDA-Public Use
  Company Number: AT-ABBVIE-5301290

PATIENT
  Age: 81 Year
  Sex: Male
  Weight: 93.7 kg

DRUGS (95)
  1. VENETOCLAX [Suspect]
     Active Substance: VENETOCLAX
     Indication: Acute myeloid leukaemia
     Dosage: FREQUENCY TEXT: RAMP UP PHASE?CONCOMITANT DISEASE
     Route: 048
     Dates: start: 20230616, end: 20230706
  2. VENETOCLAX [Suspect]
     Active Substance: VENETOCLAX
     Indication: Acute myeloid leukaemia
     Dosage: FREQUENCY TEXT: RAMP UP PHASE
     Route: 048
     Dates: start: 20230602, end: 20230604
  3. VENETOCLAX [Suspect]
     Active Substance: VENETOCLAX
     Indication: Acute myeloid leukaemia
     Dosage: FREQUENCY TEXT: RAMP UP PHASE
     Route: 048
     Dates: start: 20230605, end: 20230615
  4. VENETOCLAX [Suspect]
     Active Substance: VENETOCLAX
     Indication: Acute myeloid leukaemia
     Dosage: FREQUENCY TEXT: RAMP UP PHASE?CONCOMITANT DISEASE
     Route: 048
     Dates: start: 20230709, end: 20230710
  5. VENETOCLAX [Suspect]
     Active Substance: VENETOCLAX
     Indication: Acute myeloid leukaemia
     Dosage: FREQUENCY TEXT: RAMP UP PHASE
     Route: 048
     Dates: start: 20230718, end: 20230718
  6. VENETOCLAX [Suspect]
     Active Substance: VENETOCLAX
     Indication: Acute myeloid leukaemia
     Dosage: STANDARD DOSE?CONCOMITANT DISEASE
     Route: 048
     Dates: start: 20230719, end: 20230808
  7. VENETOCLAX [Suspect]
     Active Substance: VENETOCLAX
     Indication: Acute myeloid leukaemia
     Dosage: FREQUENCY TEXT: STANDARD DOSE?CONCOMITANT DISEASE
     Route: 048
     Dates: start: 20230829, end: 20230910
  8. VENETOCLAX [Suspect]
     Active Substance: VENETOCLAX
     Indication: Acute myeloid leukaemia
     Dosage: FREQUENCY TEXT: RAMP UP PHASE?CONCOMITANT DISEASE
     Route: 048
     Dates: start: 20231107, end: 20231113
  9. VENETOCLAX [Suspect]
     Active Substance: VENETOCLAX
     Indication: Acute myeloid leukaemia
     Dosage: CONCOMITANT DISEASE
     Route: 048
     Dates: start: 20231211, end: 20231217
  10. VENETOCLAX [Suspect]
     Active Substance: VENETOCLAX
     Indication: Acute myeloid leukaemia
     Route: 048
     Dates: start: 20240122, end: 20240128
  11. VENETOCLAX [Suspect]
     Active Substance: VENETOCLAX
     Indication: Acute myeloid leukaemia
     Route: 048
     Dates: start: 20240304, end: 20240310
  12. VENETOCLAX [Suspect]
     Active Substance: VENETOCLAX
     Indication: Acute myeloid leukaemia
     Dosage: DOSE: 0 MG
     Route: 048
     Dates: start: 20230707, end: 20230708
  13. VENETOCLAX [Suspect]
     Active Substance: VENETOCLAX
     Indication: Acute myeloid leukaemia
     Dosage: DOSE: 0 MG
     Route: 048
     Dates: start: 20230711, end: 20230717
  14. VENETOCLAX [Suspect]
     Active Substance: VENETOCLAX
     Indication: Acute myeloid leukaemia
     Dosage: DOSE: 0 MG
     Route: 048
     Dates: start: 20230809, end: 20230828
  15. VENETOCLAX [Suspect]
     Active Substance: VENETOCLAX
     Indication: Acute myeloid leukaemia
     Dosage: DOSE: 0 MG
     Route: 048
     Dates: start: 20230911, end: 20231106
  16. VENETOCLAX [Suspect]
     Active Substance: VENETOCLAX
     Indication: Acute myeloid leukaemia
     Dosage: DOSE: 0 MG
     Route: 048
     Dates: start: 20231114, end: 20231210
  17. VENETOCLAX [Suspect]
     Active Substance: VENETOCLAX
     Indication: Acute myeloid leukaemia
     Dosage: DOSE: 0 MG
     Route: 048
     Dates: start: 20240129, end: 20240303
  18. VENETOCLAX [Suspect]
     Active Substance: VENETOCLAX
     Indication: Acute myeloid leukaemia
     Route: 048
     Dates: start: 202403
  19. BISOPROLOL FUMARATE [Concomitant]
     Active Substance: BISOPROLOL FUMARATE
     Indication: Hypertension
     Dosage: FREQUENCY TEXT: DAILY
     Route: 048
     Dates: start: 2023, end: 20230603
  20. BISOPROLOL FUMARATE [Concomitant]
     Active Substance: BISOPROLOL FUMARATE
     Indication: Hypertension
     Dosage: FREQUENCY TEXT: ONCE DAILY
     Route: 048
     Dates: start: 20230805
  21. BISOPROLOL FUMARATE [Concomitant]
     Active Substance: BISOPROLOL FUMARATE
     Indication: Hypertension
     Dosage: FREQUENCY TEXT: DAILY
     Route: 048
     Dates: start: 20230604, end: 20230605
  22. LASIX [Concomitant]
     Active Substance: FUROSEMIDE
     Indication: Adjuvant therapy
     Dosage: FREQUENCY TEXT: DAILY
     Route: 048
     Dates: start: 20230608, end: 20230609
  23. LASIX [Concomitant]
     Active Substance: FUROSEMIDE
     Indication: Adjuvant therapy
     Dosage: FREQUENCY TEXT: ONCE
     Route: 048
     Dates: end: 20240311
  24. PANTOPRAZOLE SODIUM [Concomitant]
     Active Substance: PANTOPRAZOLE SODIUM
     Indication: Prophylaxis
     Dosage: FREQUENCY TEXT: DAILY
     Route: 048
  25. NEURONTIN [Concomitant]
     Active Substance: GABAPENTIN
     Indication: Polyneuropathy
     Dosage: FREQUENCY TEXT: DAILY
     Route: 048
  26. FOLIC ACID [Concomitant]
     Active Substance: FOLIC ACID
     Indication: Product used for unknown indication
     Dosage: FREQUENCY TEXT: DAILY
     Route: 048
     Dates: start: 20230531, end: 20230704
  27. FOLIC ACID [Concomitant]
     Active Substance: FOLIC ACID
     Indication: Product used for unknown indication
     Dosage: FREQUENCY TEXT: WEEKLY
     Route: 048
     Dates: start: 20230705
  28. LEVOFLOXACIN [Concomitant]
     Active Substance: LEVOFLOXACIN
     Indication: Product used for unknown indication
     Dosage: FREQUENCY TEXT: DAILY
     Route: 048
     Dates: start: 20230630, end: 20230804
  29. GRANULOCYTE COLONY-STIMULATING FACTOR NOS [Concomitant]
     Active Substance: GRANULOCYTE COLONY-STIMULATING FACTOR NOS
     Indication: Product used for unknown indication
     Dosage: FREQUENCY TEXT: EVERY THIRD DAY
     Dates: start: 20230710, end: 20230711
  30. GRANULOCYTE COLONY-STIMULATING FACTOR NOS [Concomitant]
     Active Substance: GRANULOCYTE COLONY-STIMULATING FACTOR NOS
     Indication: Product used for unknown indication
     Dosage: FREQUENCY TEXT: DAILY
     Dates: start: 20230829, end: 20230910
  31. GRANULOCYTE COLONY-STIMULATING FACTOR NOS [Concomitant]
     Active Substance: GRANULOCYTE COLONY-STIMULATING FACTOR NOS
     Indication: Product used for unknown indication
     Dosage: TIME INTERVAL: AS NECESSARY: FREQUENCY TEXT: AS REQUIRED
     Dates: start: 20230714, end: 20230715
  32. GRANULOCYTE COLONY-STIMULATING FACTOR NOS [Concomitant]
     Active Substance: GRANULOCYTE COLONY-STIMULATING FACTOR NOS
     Indication: Product used for unknown indication
     Dosage: FREQUENCY TEXT: EVERY THIRD DAY
     Dates: start: 20230718, end: 20230803
  33. GRANULOCYTE COLONY-STIMULATING FACTOR NOS [Concomitant]
     Active Substance: GRANULOCYTE COLONY-STIMULATING FACTOR NOS
     Indication: Product used for unknown indication
     Dosage: FREQUENCY TEXT: EVERY THIRD DAY
     Dates: start: 20230911, end: 20231106
  34. GRANULOCYTE COLONY-STIMULATING FACTOR NOS [Concomitant]
     Active Substance: GRANULOCYTE COLONY-STIMULATING FACTOR NOS
     Indication: Product used for unknown indication
     Dosage: FREQUENCY TEXT: EVERY THIRD DAY
     Route: 042
     Dates: start: 20231121, end: 20231214
  35. GRANULOCYTE COLONY-STIMULATING FACTOR NOS [Concomitant]
     Active Substance: GRANULOCYTE COLONY-STIMULATING FACTOR NOS
     Indication: Product used for unknown indication
     Dosage: FREQUENCY TEXT: EVERY THIRD DAY
     Dates: start: 20240318
  36. AZACITIDINE [Concomitant]
     Active Substance: AZACITIDINE
     Indication: Product used for unknown indication
     Dosage: FREQUENCY TEXT: STANDARD DOSE?DOSE 155.47
     Dates: start: 20230829, end: 20230904
  37. AZACITIDINE [Concomitant]
     Active Substance: AZACITIDINE
     Indication: Product used for unknown indication
     Dosage: FREQUENCY TEXT: STANDARD DOSE?DOSE 157.43 MG
     Dates: start: 20230717, end: 20230723
  38. AZACITIDINE [Concomitant]
     Active Substance: AZACITIDINE
     Indication: Product used for unknown indication
     Dosage: FREQUENCY TEXT: STANDARD DOSE?DOSE 161.32 MG
     Dates: start: 20230601, end: 20230607
  39. AZACITIDINE [Concomitant]
     Active Substance: AZACITIDINE
     Indication: Product used for unknown indication
     Dosage: FREQUENCY TEXT: STANDARD DOSE?DOSE150.04
     Dates: start: 20231106, end: 20231112
  40. AZACITIDINE [Concomitant]
     Active Substance: AZACITIDINE
     Indication: Product used for unknown indication
     Dosage: FREQUENCY TEXT: STANDARD DOSE?DOSE 152.24
     Dates: start: 20231211, end: 20231217
  41. AZACITIDINE [Concomitant]
     Active Substance: AZACITIDINE
     Indication: Product used for unknown indication
     Dosage: FREQUENCY TEXT: STANDARD DOSE?154.4 MG
     Dates: start: 20240122, end: 20240128
  42. AZACITIDINE [Concomitant]
     Active Substance: AZACITIDINE
     Indication: Product used for unknown indication
     Dosage: FREQUENCY TEXT: STANDARD DOSE?155.61MG
     Dates: start: 20240304, end: 20240310
  43. NOVORAPID [Concomitant]
     Active Substance: INSULIN ASPART
     Indication: Product used for unknown indication
     Dosage: FREQUENCY TEXT: DAILY
     Route: 058
     Dates: start: 20230607, end: 20230703
  44. AROSUVA [Concomitant]
     Indication: Hypercholesterolaemia
     Dosage: FREQUENCY TEXT: DAILY
     Route: 048
  45. TAMSULOSIN [Concomitant]
     Active Substance: TAMSULOSIN
     Indication: Benign prostatic hyperplasia
     Dosage: FREQUENCY TEXT: DAILY, 0.4MG
     Route: 048
     Dates: end: 20240310
  46. TAMSULOSIN [Concomitant]
     Active Substance: TAMSULOSIN
     Indication: Benign prostatic hyperplasia
     Route: 048
  47. ACETAMINOPHEN [Concomitant]
     Active Substance: ACETAMINOPHEN
     Indication: Product used for unknown indication
     Dosage: TIME INTERVAL: AS NECESSARY
     Route: 042
     Dates: start: 20230623
  48. ACETAMINOPHEN [Concomitant]
     Active Substance: ACETAMINOPHEN
     Indication: Product used for unknown indication
     Dosage: TIME INTERVAL: AS NECESSARY: FREQUENCY TEXT: AS REQUIRED
     Route: 042
     Dates: start: 20240310, end: 20240318
  49. ACETAMINOPHEN [Concomitant]
     Active Substance: ACETAMINOPHEN
     Indication: Product used for unknown indication
     Dosage: TIME INTERVAL: AS NECESSARY
     Route: 042
     Dates: start: 202403
  50. TOUJEO [Concomitant]
     Active Substance: INSULIN GLARGINE
     Indication: Type 2 diabetes mellitus
     Dosage: TOUEJO 300 IE, FORM STRENGTH: 300 IU (INTERNATIONAL UNIT)?FREQUENCY TEXT: DAILY
     Route: 058
     Dates: start: 20230612
  51. PREDNISOLONE [Concomitant]
     Active Substance: PREDNISOLONE
     Indication: Product used for unknown indication
     Dosage: FREQUENCY TEXT: DAILY
     Route: 048
     Dates: start: 20230608, end: 20230608
  52. PREDNISOLONE [Concomitant]
     Active Substance: PREDNISOLONE
     Indication: Product used for unknown indication
     Dosage: FREQUENCY TEXT: DAILY?DOSE:12.5 MG
     Route: 048
     Dates: start: 20230609, end: 20230609
  53. PREDNISOLONE [Concomitant]
     Active Substance: PREDNISOLONE
     Indication: Product used for unknown indication
     Dosage: FREQUENCY TEXT: DAILY
     Route: 048
     Dates: start: 20230602, end: 20230605
  54. PREDNISOLONE [Concomitant]
     Active Substance: PREDNISOLONE
     Indication: Product used for unknown indication
     Dosage: FREQUENCY TEXT: DAILY
     Route: 048
     Dates: start: 20230530, end: 20230601
  55. PREDNISOLONE [Concomitant]
     Active Substance: PREDNISOLONE
     Indication: Product used for unknown indication
     Dosage: FREQUENCY TEXT: DAILY?DOSE: 37.5 MG
     Route: 048
     Dates: start: 20230606, end: 20230607
  56. ONDANSETRON [Concomitant]
     Active Substance: ONDANSETRON
     Indication: Supportive care
     Dosage: FREQUENCY TEXT: DAILY
     Dates: start: 20230601, end: 20230607
  57. ONDANSETRON [Concomitant]
     Active Substance: ONDANSETRON
     Indication: Supportive care
     Dosage: FREQUENCY TEXT: DAILY
     Dates: start: 20230717, end: 20230723
  58. ONDANSETRON [Concomitant]
     Active Substance: ONDANSETRON
     Indication: Supportive care
     Dosage: FREQUENCY TEXT: DAILY
     Dates: start: 20230829, end: 20230904
  59. ONDANSETRON [Concomitant]
     Active Substance: ONDANSETRON
     Indication: Supportive care
     Dosage: FREQUENCY TEXT: DAILY
     Dates: start: 20231106, end: 20231112
  60. ONDANSETRON [Concomitant]
     Active Substance: ONDANSETRON
     Indication: Supportive care
     Dosage: FREQUENCY TEXT: DAILY
     Dates: start: 20231211, end: 20231217
  61. ONDANSETRON [Concomitant]
     Active Substance: ONDANSETRON
     Indication: Supportive care
     Dates: start: 20240122, end: 20240128
  62. ONDANSETRON [Concomitant]
     Active Substance: ONDANSETRON
     Indication: Supportive care
     Dates: start: 20240304, end: 20240310
  63. ASPIRIN [Concomitant]
     Active Substance: ASPIRIN
     Indication: Coronary artery disease
     Dosage: FREQUENCY TEXT: DAILY
     Route: 048
     Dates: start: 20230630, end: 20230710
  64. ASPIRIN [Concomitant]
     Active Substance: ASPIRIN
     Indication: Coronary artery disease
     Dosage: FREQUENCY TEXT: DAILY
     Route: 048
     Dates: start: 20230828, end: 20230910
  65. ASPIRIN [Concomitant]
     Active Substance: ASPIRIN
     Indication: Coronary artery disease
     Dosage: FREQUENCY TEXT: DAILY
     Route: 048
     Dates: start: 20230926
  66. ASPIRIN [Concomitant]
     Active Substance: ASPIRIN
     Indication: Coronary artery disease
     Dosage: FREQUENCY TEXT: DAILY
     Route: 048
     Dates: end: 20230610
  67. POLYETHYLENE GLYCOL 3350\POTASSIUM CHLORIDE\SODIUM BICARBONATE\SODIUM [Concomitant]
     Active Substance: POLYETHYLENE GLYCOL 3350\POTASSIUM CHLORIDE\SODIUM BICARBONATE\SODIUM CHLORIDE
     Indication: Constipation
     Dosage: TIME INTERVAL: AS NECESSARY: FREQUENCY TEXT: ONCE
     Route: 048
  68. RASBURICASE [Concomitant]
     Active Substance: RASBURICASE
     Indication: Supportive care
     Dosage: FREQUENCY TEXT: DAILY?DOSE 7.5 MG
     Dates: start: 20230601, end: 20230601
  69. RASBURICASE [Concomitant]
     Active Substance: RASBURICASE
     Indication: Supportive care
     Dosage: FREQUENCY TEXT: DAILY
     Dates: start: 20230601, end: 20230607
  70. ELOZELL SPEZIAL [Concomitant]
     Indication: Supportive care
     Dosage: FREQUENCY TEXT: DAILY
     Dates: start: 20230614, end: 20230615
  71. CLOPIDOGREL [Concomitant]
     Active Substance: CLOPIDOGREL BISULFATE
     Indication: Coronary artery disease
     Dosage: FREQUENCY TEXT: DAILY?FREQUENCY TEXT: ONCE
     Route: 048
     Dates: start: 20231009
  72. CLOPIDOGREL [Concomitant]
     Active Substance: CLOPIDOGREL BISULFATE
     Indication: Coronary artery disease
     Dosage: FREQUENCY TEXT: DAILY
     Route: 048
     Dates: end: 20230610
  73. CLOPIDOGREL [Concomitant]
     Active Substance: CLOPIDOGREL BISULFATE
     Indication: Coronary artery disease
     Dosage: FREQUENCY TEXT: DAILY
     Route: 048
     Dates: start: 20230628, end: 20230905
  74. MYCOSTATIN [Concomitant]
     Active Substance: NYSTATIN
     Indication: Supportive care
     Dosage: FREQUENCY TEXT: DAILY
     Route: 048
     Dates: start: 20230606
  75. ACYCLOVIR [Concomitant]
     Active Substance: ACYCLOVIR
     Indication: Supportive care
     Dosage: FREQUENCY TEXT: DAILY
     Dates: start: 20230531, end: 20230613
  76. ACYCLOVIR [Concomitant]
     Active Substance: ACYCLOVIR
     Indication: Supportive care
     Dosage: FREQUENCY TEXT: DAILY
     Dates: start: 20230805
  77. ACYCLOVIR [Concomitant]
     Active Substance: ACYCLOVIR
     Indication: Supportive care
     Dosage: FREQUENCY TEXT: DAILY
     Route: 048
     Dates: start: 20240305
  78. ACYCLOVIR [Concomitant]
     Active Substance: ACYCLOVIR
     Indication: Supportive care
     Dosage: FREQUENCY TEXT: ONCE
     Route: 048
  79. MEROPENEM [Concomitant]
     Active Substance: MEROPENEM
     Indication: Product used for unknown indication
     Dosage: FREQUENCY TEXT: DAILY
     Route: 042
     Dates: start: 20230623, end: 20230629
  80. LEVOFLOXACIN [Concomitant]
     Active Substance: LEVOFLOXACIN
     Indication: Product used for unknown indication
     Dosage: FREQUENCY TEXT: DAILLY
     Route: 054
     Dates: start: 20230805, end: 20230816
  81. CASPOFUNGIN [Concomitant]
     Active Substance: CASPOFUNGIN
     Indication: Product used for unknown indication
     Dosage: FREQUENCY TEXT: DAILY
     Route: 042
     Dates: start: 20230624, end: 20230629
  82. CASPOFUNGIN [Concomitant]
     Active Substance: CASPOFUNGIN
     Indication: Product used for unknown indication
     Dosage: FREQUENCY TEXT: DAILY
     Route: 042
     Dates: start: 20230623, end: 20230623
  83. METRONIDAZOLE [Concomitant]
     Active Substance: METRONIDAZOLE
     Indication: Product used for unknown indication
     Dosage: FREQUENCY TEXT: DAILY
     Route: 042
     Dates: start: 20230808, end: 20230817
  84. METRONIDAZOLE [Concomitant]
     Active Substance: METRONIDAZOLE
     Indication: Product used for unknown indication
     Dosage: FREQUENCY TEXT: DAILY
     Route: 042
     Dates: start: 20230910, end: 20230922
  85. METRONIDAZOLE [Concomitant]
     Active Substance: METRONIDAZOLE
     Indication: Product used for unknown indication
     Dosage: FREQUENCY TEXT: DAILY
     Route: 042
     Dates: start: 20231002, end: 20231009
  86. Lidaprim [Concomitant]
     Indication: Supportive care
     Dosage: FREQUENCY TEXT: EVERY OTHER DAY?LIDAPRIM FORTE
     Dates: start: 20230531, end: 20230802
  87. Lidaprim [Concomitant]
     Indication: Supportive care
     Dosage: FREQUENCY TEXT: EVERY 2ND DAY?FORTE
     Dates: start: 20230805, end: 20230910
  88. Lidaprim [Concomitant]
     Indication: Supportive care
     Dosage: FREQUENCY TEXT: EVERY SECOND DAY/LAST ADMIN TEXT: MAR 2024
     Route: 048
     Dates: start: 20240305
  89. Lidaprim [Concomitant]
     Indication: Supportive care
     Dosage: FREQUENCY TEXT: 3X/WEEK
     Route: 048
     Dates: start: 202403
  90. CEFUROXIME [Concomitant]
     Active Substance: CEFUROXIME
     Indication: Product used for unknown indication
     Dosage: FREQUENCY TEXT: DAILY
     Route: 042
     Dates: start: 20231002, end: 20231009
  91. DEXIBUPROFEN [Concomitant]
     Active Substance: DEXIBUPROFEN
     Indication: Product used for unknown indication
     Dosage: FREQUENCY TEXT: DAILY
     Route: 048
     Dates: start: 20231008, end: 20231011
  92. HUMAN RED BLOOD CELL [Concomitant]
     Active Substance: HUMAN RED BLOOD CELL
     Indication: Product used for unknown indication
     Dosage: TIME INTERVAL: AS NECESSARY: FREQUENCY TEXT: AS REQUIRED?ERYTHROCYTE CONCENTRATE
     Dates: start: 20230601, end: 20231216
  93. HUMAN RED BLOOD CELL [Concomitant]
     Active Substance: HUMAN RED BLOOD CELL
     Indication: Product used for unknown indication
     Dosage: TIME INTERVAL: AS NECESSARY: FREQUENCY TEXT: AS REQUIRED?ERYTHROCYTE CONCENTRATE
     Dates: start: 20240212, end: 20240213
  94. HUMAN RED BLOOD CELL [Concomitant]
     Active Substance: HUMAN RED BLOOD CELL
     Indication: Product used for unknown indication
     Dosage: TIME INTERVAL: AS NECESSARY: FREQUENCY TEXT: AS REQUIRED
     Dates: start: 20240311, end: 20240318
  95. APIDRA [Concomitant]
     Active Substance: INSULIN GLULISINE
     Indication: Type 2 diabetes mellitus
     Dosage: 100 U/ML?100 E/ML, FREQUENCY TEXT: ACCORDING TO SCHEME
     Route: 058

REACTIONS (75)
  - Appendicitis [Recovered/Resolved]
  - Neutropenia [Recovered/Resolved]
  - Infection [Recovered/Resolved]
  - Thrombocytopenia [Recovered/Resolved]
  - Thrombocytopenia [Recovered/Resolved]
  - Thrombocytopenia [Recovered/Resolved]
  - Vomiting [Recovered/Resolved]
  - Febrile neutropenia [Recovered/Resolved]
  - Thrombocytopenia [Recovered/Resolved]
  - Thrombocytopenia [Recovered/Resolved]
  - Diarrhoea [Recovered/Resolved]
  - Neutropenia [Recovered/Resolved]
  - Neutropenia [Recovered/Resolved]
  - Neutropenia [Recovered/Resolved]
  - Thrombocytopenia [Recovered/Resolved]
  - Anaemia [Recovered/Resolved]
  - Anaemia [Recovered/Resolved]
  - Anaemia [Recovered/Resolved]
  - Leukopenia [Recovered/Resolved]
  - Anaemia [Recovered/Resolved]
  - Anaemia [Recovered/Resolved]
  - Pneumonia [Recovered/Resolved]
  - Anaemia [Recovered/Resolved]
  - Anaemia [Recovered/Resolved]
  - Anaemia [Recovered/Resolved]
  - Anaemia [Recovered/Resolved]
  - Anaemia [Recovered/Resolved]
  - Anaemia [Recovered/Resolved]
  - Anaemia [Recovered/Resolved]
  - Anaemia [Recovered/Resolved]
  - Anaemia [Recovered/Resolved]
  - Thrombocytopenia [Recovered/Resolved]
  - Thrombocytopenia [Recovered/Resolved]
  - Anaemia [Recovered/Resolved]
  - Anaemia [Recovered/Resolved]
  - Anaemia [Recovered/Resolved]
  - Pyrexia [Recovered/Resolved]
  - Blood creatinine increased [Recovered/Resolved]
  - Transaminases increased [Recovered/Resolved]
  - Blood creatinine increased [Recovered/Resolved]
  - Leukopenia [Recovered/Resolved]
  - Anaemia [Recovered/Resolved]
  - Blood creatinine increased [Recovered/Resolved]
  - Blood creatinine increased [Recovered/Resolved]
  - Blood creatinine increased [Recovered/Resolved]
  - Leukopenia [Recovered/Resolved]
  - Leukopenia [Recovered/Resolved]
  - Thrombocytopenia [Recovered/Resolved]
  - Febrile neutropenia [Recovered/Resolved]
  - Anaemia [Recovered/Resolved]
  - Neutropenia [Recovered/Resolved]
  - Appendicitis noninfective [Recovered/Resolved]
  - Thrombocytopenia [Recovered/Resolved]
  - Anaemia [Recovered/Resolved]
  - Leukocytosis [Recovered/Resolved]
  - Anaemia [Recovered/Resolved]
  - Hyperbilirubinaemia [Unknown]
  - Transaminases increased [Recovered/Resolved]
  - Blood creatinine increased [Recovered/Resolved]
  - Leukopenia [Recovered/Resolved]
  - Blood creatinine increased [Recovered/Resolved]
  - Anaemia [Recovered/Resolved]
  - Anaemia [Recovered/Resolved]
  - Anaemia [Recovered/Resolved]
  - Leukopenia [Recovered/Resolved]
  - Anaemia [Unknown]
  - Anaemia [Recovered/Resolved]
  - Leukopenia [Recovered/Resolved]
  - Anaemia [Recovered/Resolved]
  - Leukopenia [Recovered/Resolved]
  - Anaemia [Recovered/Resolved]
  - C-reactive protein increased [Unknown]
  - Anaemia [Unknown]
  - Neutrophil count increased [Recovered/Resolved]
  - Anaemia [Recovered/Resolved]

NARRATIVE: CASE EVENT DATE: 20230602
